FAERS Safety Report 6867960-0 (Version None)
Quarter: 2010Q3

REPORT INFORMATION
  Report Type: 
  Country: None (occurrence: None)
  Receive Date: 20100722
  Receipt Date: 20080620
  Transmission Date: 20110219
  Serious: Yes (Other)
  Sender: FDA-Public Use
  Company Number: US-PFIZER INC-2008040293

PATIENT
  Sex: Male
  Weight: 104 kg

DRUGS (6)
  1. CHANTIX [Suspect]
     Indication: SMOKING CESSATION THERAPY
     Route: 048
     Dates: start: 20080401, end: 20080430
  2. TRAZODONE [Concomitant]
  3. GEODON [Concomitant]
  4. CLOZAPINE [Concomitant]
  5. REMERON [Concomitant]
  6. ROZEREM [Concomitant]

REACTIONS (2)
  - AGGRESSION [None]
  - ANGER [None]
